FAERS Safety Report 9532039 (Version 3)
Quarter: 2014Q1

REPORT INFORMATION
  Report Type: Spontaneous
  Country: GB (occurrence: GB)
  Receive Date: 20130918
  Receipt Date: 20140206
  Transmission Date: 20141002
  Serious: Yes (Death, Hospitalization, Other)
  Sender: FDA-Public Use
  Company Number: GB-BAXTER-2013BAX036406

PATIENT
  Age: 42 Year
  Sex: Female
  Weight: 96 kg

DRUGS (1)
  1. FEIBA IMMUNO FACTOR VIII INHIBITOR BYPASSING FRATION HUMAN VAPOUR HEAT [Suspect]
     Indication: FACTOR V INHIBITION
     Route: 042
     Dates: start: 20130824, end: 20130902

REACTIONS (2)
  - Cerebral haemorrhage [Fatal]
  - Infarction [Unknown]
